FAERS Safety Report 20090716 (Version 1)
Quarter: 2021Q4

REPORT INFORMATION
  Report Type: Spontaneous
  Country: CR (occurrence: CR)
  Receive Date: 20211119
  Receipt Date: 20211119
  Transmission Date: 20220303
  Serious: Yes (Other)
  Sender: FDA-Public Use
  Company Number: CR-009507513-2012CRI002301

PATIENT
  Age: 21 Year
  Sex: Female
  Weight: 69 kg

DRUGS (1)
  1. ETONOGESTREL [Suspect]
     Active Substance: ETONOGESTREL
     Indication: Contraception
     Dosage: 1 IMPLANT IN THE LEFT ARM
     Route: 059
     Dates: start: 20171222, end: 20201203

REACTIONS (3)
  - Pregnancy with implant contraceptive [Recovered/Resolved]
  - Epilepsy [Unknown]
  - Unintended pregnancy [Recovered/Resolved]

NARRATIVE: CASE EVENT DATE: 20190101
